FAERS Safety Report 9443202 (Version 1)
Quarter: 2013Q3

REPORT INFORMATION
  Report Type: Spontaneous
  Country: GB (occurrence: GB)
  Receive Date: 20130806
  Receipt Date: 20130806
  Transmission Date: 20140515
  Serious: Yes (Hospitalization)
  Sender: FDA-Public Use
  Company Number: GB-WATSON-2013-13689

PATIENT
  Age: 80 Year
  Sex: Male

DRUGS (12)
  1. WARFARIN (UNKNOWN) [Suspect]
     Indication: ATRIAL FIBRILLATION
     Dosage: UNK, UNKNOWN
     Route: 065
     Dates: start: 2010, end: 20130522
  2. FUROSEMIDE (UNKNOWN) [Suspect]
     Indication: HYPERTENSION
     Dosage: UNK, UNKNOWN
     Route: 065
     Dates: start: 2012
  3. PLACEBO [Suspect]
     Indication: CARDIOVASCULAR EVENT PROPHYLAXIS
     Dosage: 32 MG, UNKNOWN
     Route: 048
     Dates: start: 20130520, end: 20130521
  4. CO-PROXAMOL [Concomitant]
     Indication: PAIN
     Dosage: UNK, UNKNOWN
     Route: 065
     Dates: start: 2008
  5. SIMVASTATIN [Concomitant]
     Indication: HYPERCHOLESTEROLAEMIA
     Dosage: 20 MG, UNKNOWN
     Route: 065
     Dates: start: 20081024
  6. FEXOFENADINE HYDROCHLORIDE [Concomitant]
     Indication: COUGH
     Dosage: 120 MG, UNKNOWN
     Route: 065
     Dates: start: 20130401
  7. BISOPROLOL [Concomitant]
     Indication: ANGINA PECTORIS
     Dosage: 2.5 MG, UNKNOWN
     Dates: start: 20121023
  8. PREDNISOLONE [Concomitant]
     Indication: COUGH
     Dosage: 1 DF, UNKNOWN
     Route: 065
     Dates: start: 20130425, end: 20130502
  9. MORPHINE [Concomitant]
     Indication: GOUT
     Dosage: 1 DF, UNKNOWN
     Route: 065
     Dates: start: 20130512, end: 20130512
  10. COLCHICINE [Concomitant]
     Indication: GOUT
     Dosage: 6 DF, UNKNOWN
     Route: 065
     Dates: start: 20130513, end: 20130514
  11. COLCHICINE [Concomitant]
     Dosage: 3 DF, UNKNOWN
     Route: 065
     Dates: start: 20130519
  12. CANDESARTAN [Concomitant]
     Indication: HYPERTENSION
     Dosage: 32 MG, UNKNOWN
     Route: 065
     Dates: start: 2006

REACTIONS (1)
  - Epistaxis [Recovered/Resolved]
